FAERS Safety Report 7077840-6 (Version None)
Quarter: 2010Q4

REPORT INFORMATION
  Report Type: 
  Country: None (occurrence: None)
  Receive Date: 20101101
  Receipt Date: 20101025
  Transmission Date: 20110411
  Serious: Yes (Death, Other)
  Sender: FDA-Public Use
  Company Number: PHHY2010US71852

PATIENT
  Age: 40 Year
  Sex: Female

DRUGS (2)
  1. DIOVAN [Suspect]
     Indication: HYPERTENSION
     Dosage: QD
     Route: 048
  2. METFORMIN [Concomitant]

REACTIONS (3)
  - HEPATIC FAILURE [None]
  - HEPATITIS [None]
  - JAUNDICE [None]
